FAERS Safety Report 13495397 (Version 1)
Quarter: 2017Q2

REPORT INFORMATION
  Report Type: Spontaneous
  Country: KR (occurrence: KR)
  Receive Date: 20170428
  Receipt Date: 20170428
  Transmission Date: 20170830
  Serious: Yes (Other)
  Sender: FDA-Public Use
  Company Number: PHHY2017KR059787

PATIENT
  Age: 74 Year
  Sex: Female

DRUGS (1)
  1. FAMVIR [Suspect]
     Active Substance: FAMCICLOVIR
     Indication: HERPES SIMPLEX
     Dosage: UNK UNK, PRN
     Route: 048

REACTIONS (10)
  - Herpes simplex [Recovering/Resolving]
  - Pain [Unknown]
  - Blister [Recovering/Resolving]
  - Bronchitis [Not Recovered/Not Resolved]
  - Viral upper respiratory tract infection [Not Recovered/Not Resolved]
  - Inappropriate schedule of drug administration [Unknown]
  - Pyrexia [Unknown]
  - Feeling hot [Unknown]
  - Oral herpes [Not Recovered/Not Resolved]
  - Pruritus [Unknown]

NARRATIVE: CASE EVENT DATE: 20170419
